FAERS Safety Report 9246018 (Version 2)
Quarter: 2013Q2

REPORT INFORMATION
  Report Type: Spontaneous
  Country: IN (occurrence: IN)
  Receive Date: 20130422
  Receipt Date: 20130510
  Transmission Date: 20140414
  Serious: Yes (Death, Other)
  Sender: FDA-Public Use
  Company Number: IN-BRISTOL-MYERS SQUIBB COMPANY-18792317

PATIENT
  Age: 60 Year
  Sex: Male

DRUGS (1)
  1. BARACLUDE TABS 0.5 MG [Suspect]
     Dates: start: 20090923, end: 20120512

REACTIONS (2)
  - Renal impairment [Fatal]
  - Sepsis [Unknown]
